FAERS Safety Report 24572254 (Version 1)
Quarter: 2024Q4

REPORT INFORMATION
  Report Type: Spontaneous
  Country: US (occurrence: US)
  Receive Date: 20241101
  Receipt Date: 20241101
  Transmission Date: 20250114
  Serious: Yes (Hospitalization)
  Sender: PFIZER
  Company Number: US-PFIZER INC-202400289299

PATIENT

DRUGS (5)
  1. BRENTUXIMAB VEDOTIN [Suspect]
     Active Substance: BRENTUXIMAB VEDOTIN
     Indication: Hodgkin^s disease
     Dosage: RECEIVED 2 CYCLES OF BV-AVD
  2. DOXORUBICIN HYDROCHLORIDE [Suspect]
     Active Substance: DOXORUBICIN HYDROCHLORIDE
     Dosage: RECEIVED 2 CYCLES OF BV-AVD
  3. DACARBAZINE [Suspect]
     Active Substance: DACARBAZINE
     Dosage: RECEIVED 2 CYCLES OF BV-AVD
  4. VINBLASTINE [Suspect]
     Active Substance: VINBLASTINE
     Dosage: RECEIVED 2 CYCLES OF BV-AVD
  5. NEULASTA [Concomitant]
     Active Substance: PEGFILGRASTIM
     Dosage: UNK

REACTIONS (1)
  - Febrile neutropenia [Unknown]
